FAERS Safety Report 11388616 (Version 1)
Quarter: 2015Q3

REPORT INFORMATION
  Report Type: Spontaneous
  Country: US (occurrence: US)
  Receive Date: 20150817
  Receipt Date: 20150817
  Transmission Date: 20151125
  Serious: No
  Sender: FDA-Public Use
  Company Number: US-PFIZER INC-2015262241

PATIENT
  Age: 42 Year
  Sex: Female

DRUGS (7)
  1. XANAX [Concomitant]
     Active Substance: ALPRAZOLAM
     Dosage: 1 DF, 3X/DAY
  2. OXYCODONE [Concomitant]
     Active Substance: OXYCODONE
     Dosage: 10 MG, (3- 4 TIMES A DAY)
  3. KLONOPIN [Concomitant]
     Active Substance: CLONAZEPAM
     Dosage: 2 MG, DAILY (AT NIGHT AT BED TIME)
  4. GABAPENTIN. [Suspect]
     Active Substance: GABAPENTIN
     Indication: NEURALGIA
     Dosage: UNK, 2X/DAY
  5. LYRICA [Suspect]
     Active Substance: PREGABALIN
     Indication: TRIGEMINAL NEURALGIA
     Dosage: 75 MG, 2X/DAY
  6. GABAPENTIN. [Suspect]
     Active Substance: GABAPENTIN
     Indication: OCCIPITAL NEURALGIA
     Dosage: 1800 MG, DAILY
     Dates: start: 201205
  7. GABAPENTIN. [Suspect]
     Active Substance: GABAPENTIN
     Dosage: 300 MG, UNK (HALF OF ONE)
     Dates: start: 201508

REACTIONS (4)
  - Feeling abnormal [Unknown]
  - Formication [Unknown]
  - Malaise [Unknown]
  - Drug ineffective [Unknown]
